FAERS Safety Report 7792310-5 (Version None)
Quarter: 2011Q4

REPORT INFORMATION
  Report Type: 
  Country: None (occurrence: None)
  Receive Date: 20111003
  Receipt Date: 20110920
  Transmission Date: 20120403
  Serious: Yes (Hospitalization, Other)
  Sender: FDA-Public Use
  Company Number: PHEH2011US04897

PATIENT
  Sex: Male
  Weight: 99.773 kg

DRUGS (8)
  1. SOTALOL HCL [Concomitant]
     Dosage: UNK UKN, UNK
     Route: 048
  2. COUMADIN [Concomitant]
     Dosage: 48 MG, BID
     Route: 048
  3. NAMENDA [Concomitant]
     Dosage: 10 MG, BID
     Route: 048
  4. EXELON [Suspect]
     Indication: DEMENTIA ALZHEIMER'S TYPE
     Dosage: 9.5 MG/24 HOURS
     Route: 062
     Dates: start: 20110908, end: 20110919
  5. REMERON [Concomitant]
     Dosage: 15 MG, QD
  6. EXELON [Suspect]
     Dosage: 4.6 MG/24 HOURS
     Route: 062
     Dates: start: 20110919
  7. LASIX [Concomitant]
     Dosage: 40 MG, BID
     Route: 048
  8. COREG [Concomitant]
     Dosage: UNK UKN, UNK

REACTIONS (2)
  - FALL [None]
  - HEAD INJURY [None]
